FAERS Safety Report 24392060 (Version 1)
Quarter: 2024Q4

REPORT INFORMATION
  Report Type: Spontaneous
  Country: BA (occurrence: BA)
  Receive Date: 20241003
  Receipt Date: 20241003
  Transmission Date: 20250115
  Serious: Yes (Hospitalization)
  Sender: SANDOZ
  Company Number: BA-SANDOZ-SDZ2024BA084255

PATIENT
  Age: 72 Year
  Sex: Female
  Weight: 85 kg

DRUGS (6)
  1. MOMETASONE [Suspect]
     Active Substance: MOMETASONE
     Indication: Sinusitis
     Dosage: 50 MG, BID, 2X2
     Route: 045
     Dates: start: 20240902, end: 20240910
  2. MOMETASONE [Suspect]
     Active Substance: MOMETASONE
     Indication: Rhinitis
  3. DOXYCYCLINE [Concomitant]
     Active Substance: DOXYCYCLINE
     Indication: Sinusitis
     Dosage: 100 MG, QD
     Route: 065
     Dates: start: 20240902, end: 20240910
  4. DOXYCYCLINE [Concomitant]
     Active Substance: DOXYCYCLINE
     Indication: Rhinitis
  5. METFORMIN HYDROCHLORIDE [Concomitant]
     Active Substance: METFORMIN HYDROCHLORIDE
     Indication: Type 2 diabetes mellitus
     Dosage: 850, 2X1
     Route: 065
     Dates: start: 2015
  6. BILASTINE [Concomitant]
     Active Substance: BILASTINE
     Indication: Rhinitis allergic
     Dosage: 2 MG, QD
     Route: 065
     Dates: start: 202008

REACTIONS (5)
  - Nasal discharge discolouration [Recovered/Resolved with Sequelae]
  - Burning sensation mucosal [Recovered/Resolved with Sequelae]
  - Rhinalgia [Recovered/Resolved with Sequelae]
  - Oropharyngeal pain [Recovered/Resolved with Sequelae]
  - Ear pain [Recovered/Resolved with Sequelae]

NARRATIVE: CASE EVENT DATE: 20240910
